FAERS Safety Report 24637464 (Version 2)
Quarter: 2024Q4

REPORT INFORMATION
  Report Type: Spontaneous
  Country: TW (occurrence: TW)
  Receive Date: 20241119
  Receipt Date: 20241219
  Transmission Date: 20250115
  Serious: Yes (Hospitalization)
  Sender: TEVA
  Company Number: TW-TEVA-VS-3264344

PATIENT
  Age: 51 Year
  Sex: Male

DRUGS (6)
  1. MYCOPHENOLATE MOFETIL [Suspect]
     Active Substance: MYCOPHENOLATE MOFETIL
     Indication: Immunosuppressant drug therapy
     Route: 065
  2. TACROLIMUS [Concomitant]
     Active Substance: TACROLIMUS
     Indication: Immunosuppressant drug therapy
     Route: 065
  3. SIROLIMUS [Concomitant]
     Active Substance: SIROLIMUS
     Indication: Immunosuppressant drug therapy
     Route: 065
  4. PREDNISOLONE [Suspect]
     Active Substance: PREDNISOLONE
     Indication: Immunosuppressant drug therapy
     Route: 065
  5. PREDNISOLONE [Suspect]
     Active Substance: PREDNISOLONE
     Indication: Immunosuppressant drug therapy
     Dosage: TIME INTERVAL: 0.33333333 DAYS
     Route: 065
  6. PREDNISOLONE [Suspect]
     Active Substance: PREDNISOLONE
     Indication: Immunosuppressant drug therapy
     Dosage: TIME INTERVAL: 0.33333333 DAYS
     Route: 065

REACTIONS (9)
  - Gastrointestinal disorder [Unknown]
  - Shock [Unknown]
  - Drug ineffective [Unknown]
  - Meningitis aseptic [Unknown]
  - Multiple organ dysfunction syndrome [Unknown]
  - Seizure [Unknown]
  - Pneumatosis intestinalis [Unknown]
  - CEC syndrome [Unknown]
  - Mesenteric artery thrombosis [Unknown]
